FAERS Safety Report 24656911 (Version 1)
Quarter: 2024Q4

REPORT INFORMATION
  Report Type: Spontaneous
  Country: GB (occurrence: GB)
  Receive Date: 20241125
  Receipt Date: 20241125
  Transmission Date: 20250115
  Serious: Yes (Hospitalization, Other)
  Sender: AMGEN
  Company Number: GB-AMGEN-GBRSP2024229584

PATIENT
  Age: 48 Year
  Sex: Female

DRUGS (7)
  1. ETANERCEPT [Suspect]
     Active Substance: ETANERCEPT
     Indication: Rheumatoid arthritis
     Dosage: 50 MG
     Route: 065
  2. METHOTREXATE SODIUM [Suspect]
     Active Substance: METHOTREXATE SODIUM
     Indication: Rheumatoid arthritis
     Dosage: 20 MG, WEEKLY
     Route: 065
  3. SERTRALINE [Concomitant]
     Active Substance: SERTRALINE HYDROCHLORIDE
     Dosage: 100 MG TABLETS ONE TO BE TAKEN EACH DAY (TOTAL DAILY DOSE 150MG)
  4. SERTRALINE [Concomitant]
     Active Substance: SERTRALINE HYDROCHLORIDE
     Dosage: 50 MG TABLETS ONE TO BE TAKEN EACH DAY (TOTAL DAILY DOSE 150MG
  5. RAMIPRIL [Concomitant]
     Active Substance: RAMIPRIL
     Dosage: 2.5 MG CAPSULES ONE TO BE TAKEN EACH DAY (TOTAL DOSE 7.5 MG)
  6. RAMIPRIL [Concomitant]
     Active Substance: RAMIPRIL
     Dosage: 5 MG CAPSULES ONE TO BE TAKEN EACH DAY (TOTAL DOSE 7.5MG)
  7. FOLIC ACID [Concomitant]
     Active Substance: FOLIC ACID
     Dosage: 5 MG TABLETS **H ISSUE ONLY** 0.01 TABLET

REACTIONS (3)
  - Pneumocystis jirovecii pneumonia [Unknown]
  - Pneumonia [Recovered/Resolved]
  - Dyspnoea [Unknown]
